FAERS Safety Report 15334003 (Version 1)
Quarter: 2018Q3

REPORT INFORMATION
  Report Type: Spontaneous
  Country: US (occurrence: US)
  Receive Date: 20180826
  Receipt Date: 20180826
  Transmission Date: 20181010
  Serious: Yes (Disabling)
  Sender: FDA-Public Use
  Company Number: None

PATIENT
  Age: 5 Year
  Sex: Male
  Weight: 35.1 kg

DRUGS (1)
  1. MIRALAX [Suspect]
     Active Substance: POLYETHYLENE GLYCOL 3350
     Indication: CONSTIPATION
     Route: 048
     Dates: start: 20110923, end: 20170604

REACTIONS (6)
  - Fear [None]
  - Self-injurious ideation [None]
  - Psychotic behaviour [None]
  - Paranoia [None]
  - Abdominal pain upper [None]
  - Anxiety [None]

NARRATIVE: CASE EVENT DATE: 20110924
